FAERS Safety Report 16040058 (Version 1)
Quarter: 2019Q1

REPORT INFORMATION
  Report Type: Spontaneous
  Country: BG (occurrence: BG)
  Receive Date: 20190306
  Receipt Date: 20190306
  Transmission Date: 20190418
  Serious: Yes (Other)
  Sender: FDA-Public Use
  Company Number: BG-ROCHE-2269513

PATIENT
  Sex: Male

DRUGS (8)
  1. ZOPICLONE [Interacting]
     Active Substance: ZOPICLONE
     Indication: PRODUCT USED FOR UNKNOWN INDICATION
     Dosage: 1 PACK OR MORE A DAY
     Route: 065
  2. DIAZEPAM. [Suspect]
     Active Substance: DIAZEPAM
     Indication: PRODUCT USED FOR UNKNOWN INDICATION
     Route: 065
  3. HEDONIN [QUETIAPINE FUMARATE] [Interacting]
     Active Substance: QUETIAPINE FUMARATE
     Dosage: 50 MILLIGRAM DAILY; IN THE EVENING
     Route: 065
  4. GERODORM [Interacting]
     Active Substance: CINOLAZEPAM
     Indication: PRODUCT USED FOR UNKNOWN INDICATION
     Dosage: 2 PACKS PER NIGHT
     Route: 065
  5. TRITTICO [Interacting]
     Active Substance: TRAZODONE HYDROCHLORIDE
     Indication: PRODUCT USED FOR UNKNOWN INDICATION
     Dosage: UP TO 1 TABLET PER DAY
     Route: 065
  6. NEUROLAX (BULGARIA) [Interacting]
     Active Substance: HYDROXYZINE HYDROCHLORIDE
     Indication: PRODUCT USED FOR UNKNOWN INDICATION
     Dosage: 3-4 TABLETS IN THE DAY OF THE INCIDENT
     Route: 048
  7. HEDONIN [QUETIAPINE FUMARATE] [Interacting]
     Active Substance: QUETIAPINE FUMARATE
     Indication: PRODUCT USED FOR UNKNOWN INDICATION
     Dosage: 100 MILLIGRAM DAILY; SCHEME 0-0-0-4
     Route: 065
     Dates: start: 20150814
  8. NEUROTOP RETARD [Interacting]
     Active Substance: CARBAMAZEPINE
     Indication: PRODUCT USED FOR UNKNOWN INDICATION
     Dosage: 300 MILLIGRAM DAILY; IN THE EVENING
     Route: 065

REACTIONS (14)
  - Hepatic steatosis [Unknown]
  - Drug abuse [Unknown]
  - Drug interaction [Unknown]
  - Altered state of consciousness [Unknown]
  - Amnesia [Unknown]
  - Abnormal behaviour [Unknown]
  - Multiple-drug resistance [Unknown]
  - Epilepsy [Unknown]
  - Deafness unilateral [Unknown]
  - Drug ineffective [Unknown]
  - Alcohol interaction [Unknown]
  - Mental disorder [Unknown]
  - Drug dependence [Unknown]
  - Craniocerebral injury [Unknown]
